FAERS Safety Report 12609706 (Version 3)
Quarter: 2016Q3

REPORT INFORMATION
  Report Type: Spontaneous
  Country: IT (occurrence: IT)
  Receive Date: 20160801
  Receipt Date: 20160913
  Transmission Date: 20161109
  Serious: Yes (Other)
  Sender: FDA-Public Use
  Company Number: IT-ACCORD-042768

PATIENT
  Age: 76 Year
  Sex: Female
  Weight: 73 kg

DRUGS (7)
  1. PACLITAXEL/PACLITAXEL LIPOSOME [Suspect]
     Active Substance: PACLITAXEL
     Indication: BREAST CANCER
     Dosage: CYCLICAL
     Route: 042
  2. MICARDIS [Concomitant]
     Active Substance: TELMISARTAN
     Indication: HYPERTENSION
  3. GEMCITABINE/GEMCITABINE HYDROCHLORIDE [Suspect]
     Active Substance: GEMCITABINE\GEMCITABINE HYDROCHLORIDE
     Indication: BREAST CANCER
     Route: 042
     Dates: start: 20130730, end: 20141023
  4. HERCEPTIN [Suspect]
     Active Substance: TRASTUZUMAB
     Indication: BREAST CANCER
     Dosage: CYCLICAL
     Route: 042
     Dates: start: 20130730
  5. PARIET [Concomitant]
     Active Substance: RABEPRAZOLE SODIUM
     Indication: GASTRITIS
  6. KADCYLA [Suspect]
     Active Substance: ADO-TRASTUZUMAB EMTANSINE
     Indication: BREAST CANCER
     Dosage: CYCLICAL
     Route: 042
     Dates: start: 20141106, end: 20141127
  7. RYTMONORM [Concomitant]
     Active Substance: PROPAFENONE
     Indication: HYPERTENSION

REACTIONS (7)
  - Myalgia [Recovering/Resolving]
  - Vocal cord paralysis [Recovering/Resolving]
  - Diarrhoea [Recovering/Resolving]
  - Ejection fraction decreased [Recovering/Resolving]
  - Dyspnoea exertional [Recovering/Resolving]
  - Thrombocytopenia [Recovering/Resolving]
  - Thrombocytosis [None]

NARRATIVE: CASE EVENT DATE: 20141023
